FAERS Safety Report 6492109-6 (Version None)
Quarter: 2009Q4

REPORT INFORMATION
  Report Type: 
  Country: None (occurrence: None)
  Receive Date: 20091125
  Receipt Date: 20090527
  Transmission Date: 20100525
  Serious: Yes (Hospitalization)
  Sender: FDA-Public Use
  Company Number: 2009BH008836

PATIENT
  Age: 53 Year
  Sex: Female

DRUGS (13)
  1. DIANEAL [Suspect]
     Indication: PERITONEAL DIALYSIS
     Dosage: 12.5 L; EVERY DAY; IP
     Route: 033
     Dates: start: 20080701
  2. EXTRANEAL [Suspect]
     Indication: PERITONEAL DIALYSIS
     Dosage: 2 L; EVERY DAY; IP
     Route: 033
     Dates: start: 20080801
  3. AMLODIPINE [Concomitant]
  4. NEPHROCAPS [Concomitant]
  5. BUMEX [Concomitant]
  6. PHOSLO [Concomitant]
  7. EPOGEN [Concomitant]
  8. GENTAMICIN [Concomitant]
  9. METOPROLOL [Concomitant]
  10. PHOSPHOLINE IODIDE [Concomitant]
  11. BYETTA [Concomitant]
  12. QUINAPRIL [Concomitant]
  13. REPAGLINIDE [Concomitant]

REACTIONS (1)
  - PERITONITIS BACTERIAL [None]
